FAERS Safety Report 15314218 (Version 5)
Quarter: 2020Q1

REPORT INFORMATION
  Report Type: Spontaneous
  Country: US (occurrence: US)
  Receive Date: 20180824
  Receipt Date: 20200327
  Transmission Date: 20200409
  Serious: Yes (Hospitalization)
  Sender: FDA-Public Use
  Company Number: US-PFIZER INC-2017401128

PATIENT
  Age: 70 Year
  Sex: Female
  Weight: 70 kg

DRUGS (32)
  1. BUSPIRONE HCL [Concomitant]
     Active Substance: BUSPIRONE HYDROCHLORIDE
     Indication: DEPRESSION
     Dosage: UNK
     Dates: start: 2015
  2. VITAMIN B12 [Concomitant]
     Active Substance: CYANOCOBALAMIN
     Indication: MACROCYTOSIS
     Dosage: 2000 UG, DAILY
     Route: 048
  3. RANITIDINE HCL [Concomitant]
     Active Substance: RANITIDINE HYDROCHLORIDE
     Dosage: UNK
     Dates: end: 2016
  4. LEXAPRO [Concomitant]
     Active Substance: ESCITALOPRAM OXALATE
     Indication: ANXIETY
  5. ESTRACE [Concomitant]
     Active Substance: ESTRADIOL
     Indication: HORMONE REPLACEMENT THERAPY
     Dosage: 2 MG, DAILY AS DIRECTED
     Route: 048
     Dates: start: 20141107, end: 201903
  6. ESCITALOPRAM [Concomitant]
     Active Substance: ESCITALOPRAM OXALATE
     Indication: DEPRESSION
  7. TRAZODONE HYDROCHLORIDE. [Concomitant]
     Active Substance: TRAZODONE HYDROCHLORIDE
     Indication: ANXIETY
     Dosage: UNK, AS NEEDED (1 OR 2 TABLETS EVERY DAY AT BEDTIME)
     Route: 048
     Dates: start: 20170913
  8. TIZANIDINE HCL [Concomitant]
     Active Substance: TIZANIDINE HYDROCHLORIDE
     Indication: MUSCLE RELAXANT THERAPY
  9. SIMVASTATIN. [Concomitant]
     Active Substance: SIMVASTATIN
     Indication: HYPERLIPIDAEMIA
     Dosage: 40 MG, 1X/DAY (BEDTIME)
     Route: 048
     Dates: start: 20150727
  10. AMLODIPINE BESILATE [Concomitant]
     Active Substance: AMLODIPINE BESYLATE
     Indication: BLOOD PRESSURE MEASUREMENT
     Dosage: 5 MG, 1X/DAY
     Route: 048
  11. OXYCODONE AND ACETAMINOPHEN [Concomitant]
     Active Substance: ACETAMINOPHEN\OXYCODONE HYDROCHLORIDE
     Indication: PAIN MANAGEMENT
     Dosage: 1 DF, 4X/DAY
     Route: 048
     Dates: start: 20170505
  12. SYNTHROID [Concomitant]
     Active Substance: LEVOTHYROXINE SODIUM
     Indication: HYPOTHYROIDISM
     Dosage: 125 UG, DAILY
     Route: 048
     Dates: start: 20150313
  13. RANITIDINE HCL [Concomitant]
     Active Substance: RANITIDINE HYDROCHLORIDE
     Indication: DYSPEPSIA
     Dosage: 150 MG, 2X/DAY
     Route: 048
     Dates: start: 20080603
  14. LYRICA [Suspect]
     Active Substance: PREGABALIN
     Dosage: 75 MG, THREE TIMES DAILY
     Route: 048
     Dates: start: 20170203
  15. BUSPIRONE HCL [Concomitant]
     Active Substance: BUSPIRONE HYDROCHLORIDE
     Indication: ANXIETY
     Dosage: 15 MG, 3X/DAY
     Route: 048
     Dates: start: 20160407
  16. FLUTICASONE PROPIONATE. [Concomitant]
     Active Substance: FLUTICASONE PROPIONATE
     Dosage: UNK, 2X/DAY (1 SPRAY IN EACH NOSTRIL TWICE DAILY)
     Route: 045
     Dates: start: 20170505
  17. TIZANIDINE HCL [Concomitant]
     Active Substance: TIZANIDINE HYDROCHLORIDE
     Indication: PAIN
     Dosage: 2 MG, 1X/DAY (BEDTIME)
     Route: 048
     Dates: start: 20140325
  18. ATENOLOL. [Concomitant]
     Active Substance: ATENOLOL
     Indication: HYPERTENSION
     Dosage: 25 MG, 1X/DAY
     Route: 048
     Dates: start: 20100810, end: 201902
  19. LYRICA [Suspect]
     Active Substance: PREGABALIN
     Dosage: 150 MG TWICE A DAY
     Route: 048
  20. LEXAPRO [Concomitant]
     Active Substance: ESCITALOPRAM OXALATE
     Indication: MAJOR DEPRESSION
     Dosage: 5 MG, DAILY
     Route: 048
     Dates: start: 2015
  21. VITAMIN D3 [Concomitant]
     Active Substance: CHOLECALCIFEROL
     Indication: VITAMIN D DEFICIENCY
     Dosage: 2000 IU, DAILY
     Route: 048
  22. ESCITALOPRAM [Concomitant]
     Active Substance: ESCITALOPRAM OXALATE
     Indication: ANXIETY
     Dosage: 20 MG, 1X/DAY
     Route: 048
  23. ESTRADIOL. [Concomitant]
     Active Substance: ESTRADIOL
     Indication: FEELING ABNORMAL
     Dosage: 0.5 MG, 1X/DAY
     Route: 048
  24. BUSPIRONE [Concomitant]
     Active Substance: BUSPIRONE HYDROCHLORIDE
     Indication: DEPRESSION
  25. ALPRAZOLAM. [Concomitant]
     Active Substance: ALPRAZOLAM
     Indication: ANXIETY
     Dosage: 0.5 MG, 2X/DAY (AS NEEDED)
     Route: 048
     Dates: start: 20170505, end: 2018
  26. LEVOTHYROXINE. [Concomitant]
     Active Substance: LEVOTHYROXINE
     Indication: HYPOTHYROIDISM
     Dosage: 0.112 MG, 1X/DAY
     Route: 048
  27. BUSPIRONE [Concomitant]
     Active Substance: BUSPIRONE HYDROCHLORIDE
     Indication: ANXIETY
     Dosage: 30 MG, 2X/DAY
     Route: 048
  28. LYRICA [Suspect]
     Active Substance: PREGABALIN
     Indication: FIBROMYALGIA
     Dosage: 150 MG, THREE TIMES A DAY
     Route: 048
     Dates: start: 2016
  29. OXYCODONE AND ACETAMINOPHEN [Concomitant]
     Active Substance: ACETAMINOPHEN\OXYCODONE HYDROCHLORIDE
     Dosage: UNK, 4X/DAY(OXYCODONE HYDROCHLORIDE-325 MG , PARACETAMOL-10 MG/4 TIMES A DAY BY MOUTH)
     Route: 048
     Dates: start: 2001
  30. TRAZODONE HYDROCHLORIDE. [Concomitant]
     Active Substance: TRAZODONE HYDROCHLORIDE
     Indication: SLEEP DISORDER
     Dosage: 150 MG, 1X/DAY (ONCE A NIGHT BY MOUTH)
     Route: 048
  31. TIZANIDINE HCL [Concomitant]
     Active Substance: TIZANIDINE HYDROCHLORIDE
     Indication: POLYNEUROPATHY
     Dosage: 4 MG, 1X/DAY (4MG LITTLE PILL ONE A NIGHT BY MOUTH)
     Route: 048
  32. FOLIC ACID. [Concomitant]
     Active Substance: FOLIC ACID
     Indication: MACROCYTOSIS
     Dosage: 1 MG, DAILY
     Route: 048
     Dates: start: 20111025

REACTIONS (8)
  - Insomnia [Recovered/Resolved]
  - Nausea [Not Recovered/Not Resolved]
  - Frequent bowel movements [Unknown]
  - Withdrawal syndrome [Recovered/Resolved]
  - Alopecia [Not Recovered/Not Resolved]
  - Product prescribing error [Unknown]
  - Diarrhoea [Not Recovered/Not Resolved]
  - Hyperhidrosis [Not Recovered/Not Resolved]

NARRATIVE: CASE EVENT DATE: 201808
